FAERS Safety Report 5576381-2 (Version None)
Quarter: 2007Q4

REPORT INFORMATION
  Report Type: 
  Country: None (occurrence: None)
  Receive Date: 20071130
  Receipt Date: 20070917
  Transmission Date: 20080405
  Serious: No
  Sender: FDA-Public Use
  Company Number: US200709003496

PATIENT
  Age: 26 Year
  Sex: Female

DRUGS (3)
  1. BYETTA [Suspect]
     Indication: DIABETES MELLITUS
     Dosage: 5 UG, 2/D, SUBCUTANEOUS : 5 U, 2/D, SUBCUTANEOUS
     Route: 058
     Dates: start: 20070901
  2. BYETTA [Suspect]
     Indication: DIABETES MELLITUS
     Dosage: 5 UG, 2/D, SUBCUTANEOUS : 5 U, 2/D, SUBCUTANEOUS
     Route: 058
     Dates: start: 20070908
  3. GLUCOPHAGE [Concomitant]

REACTIONS (5)
  - ACCIDENTAL OVERDOSE [None]
  - BLOOD GLUCOSE INCREASED [None]
  - HEADACHE [None]
  - INCORRECT DOSE ADMINISTERED [None]
  - NAUSEA [None]
